FAERS Safety Report 7916738-5 (Version None)
Quarter: 2011Q4

REPORT INFORMATION
  Report Type: 
  Country: None (occurrence: None)
  Receive Date: 20111114
  Receipt Date: 20111104
  Transmission Date: 20120403
  Serious: Yes (Hospitalization, Other)
  Sender: FDA-Public Use
  Company Number: 2010SP038514

PATIENT
  Age: 44 Year
  Sex: Female
  Weight: 67.1324 kg

DRUGS (4)
  1. COUMADIN [Suspect]
     Indication: ANTICOAGULANT THERAPY
     Dates: start: 20080701, end: 20090123
  2. COUMADIN [Suspect]
     Indication: ANTICOAGULANT THERAPY
     Dates: start: 20090201
  3. NUVARING [Suspect]
     Indication: DYSFUNCTIONAL UTERINE BLEEDING
     Dates: start: 20080627, end: 20080715
  4. NUVARING [Suspect]
     Indication: MENSTRUAL CYCLE MANAGEMENT
     Dates: start: 20080627, end: 20080715

REACTIONS (10)
  - VAGINAL DISCHARGE [None]
  - PULMONARY INFARCTION [None]
  - VAGINAL HAEMORRHAGE [None]
  - TRANSAMINASES INCREASED [None]
  - PLEURISY [None]
  - PLEURAL EFFUSION [None]
  - VAGINAL INFECTION [None]
  - LUNG CONSOLIDATION [None]
  - PULMONARY EMBOLISM [None]
  - EMPHYSEMA [None]
